FAERS Safety Report 18501706 (Version 1)
Quarter: 2020Q4

REPORT INFORMATION
  Report Type: Other
  Country: US (occurrence: US)
  Receive Date: 20201113
  Receipt Date: 20201113
  Transmission Date: 20210114
  Serious: Yes (Hospitalization)
  Sender: FDA-Public Use
  Company Number: US-REGULIS CONSULTING LTD-2095893

PATIENT
  Age: 64 Year
  Sex: Male

DRUGS (7)
  1. DEXMEDETOMIDINE. [Concomitant]
     Active Substance: DEXMEDETOMIDINE
     Route: 042
  2. SERTRALINE [Interacting]
     Active Substance: SERTRALINE HYDROCHLORIDE
     Route: 065
  3. FENTANYL. [Interacting]
     Active Substance: FENTANYL
     Route: 042
  4. EPINEPHRINE. [Concomitant]
     Active Substance: EPINEPHRINE
     Route: 042
  5. VASOPRESSIN. [Concomitant]
     Active Substance: VASOPRESSIN
     Route: 042
  6. NOREPINEPHRINE. [Concomitant]
     Active Substance: NOREPINEPHRINE
     Route: 042
  7. METHYLENE BLUE. [Suspect]
     Active Substance: METHYLENE BLUE
     Indication: HYPOTENSION
     Route: 040

REACTIONS (2)
  - Off label use [Unknown]
  - Serotonin syndrome [Recovered/Resolved]
